FAERS Safety Report 10206122 (Version 1)
Quarter: 2014Q2

REPORT INFORMATION
  Report Type: Spontaneous
  Country: US (occurrence: US)
  Receive Date: 20140530
  Receipt Date: 20140530
  Transmission Date: 20141212
  Serious: No
  Sender: FDA-Public Use
  Company Number: US-PFIZER INC-2014147612

PATIENT
  Age: 66 Year
  Sex: Female
  Weight: 81.63 kg

DRUGS (2)
  1. NEURONTIN [Suspect]
     Indication: PAIN
     Dosage: 300 MG, 2X/DAY
     Route: 048
     Dates: start: 2010
  2. DURAGESIC [Concomitant]
     Indication: PAIN
     Dosage: UNK
     Route: 062

REACTIONS (2)
  - Somnolence [Unknown]
  - Fatigue [Unknown]
